FAERS Safety Report 16313245 (Version 2)
Quarter: 2019Q4

REPORT INFORMATION
  Report Type: Spontaneous
  Country: CN (occurrence: CN)
  Receive Date: 20190515
  Receipt Date: 20191030
  Transmission Date: 20200122
  Serious: Yes (Life-Threatening, Other)
  Sender: FDA-Public Use
  Company Number: CN-BAUSCH-BL-2019-014012

PATIENT
  Age: 10 Year
  Sex: Male

DRUGS (9)
  1. SULPERAZONE [Concomitant]
     Active Substance: CEFOPERAZONE SODIUM\SULBACTAM SODIUM
     Indication: PANCREATITIS
  2. PACLITAXEL. [Suspect]
     Active Substance: PACLITAXEL
     Indication: ACUTE LYMPHOCYTIC LEUKAEMIA
     Route: 065
  3. DAUNORUBICIN [Suspect]
     Active Substance: DAUNORUBICIN
     Indication: ACUTE LYMPHOCYTIC LEUKAEMIA
     Route: 065
  4. DEXAMETHASONE. [Suspect]
     Active Substance: DEXAMETHASONE
     Indication: ACUTE LYMPHOCYTIC LEUKAEMIA
     Route: 065
  5. ASPARAGINASE [Suspect]
     Active Substance: ASPARAGINASE
     Indication: ACUTE LYMPHOCYTIC LEUKAEMIA
     Route: 065
  6. VANCOMYCIN [Concomitant]
     Active Substance: VANCOMYCIN
     Indication: PANCREATITIS
     Dosage: DURING DAY 9
  7. VANCOMYCIN [Concomitant]
     Active Substance: VANCOMYCIN
     Dosage: DURING DAY 35
  8. CYCLOPHOSPHAMIDE. [Suspect]
     Active Substance: CYCLOPHOSPHAMIDE
     Indication: ACUTE LYMPHOCYTIC LEUKAEMIA
     Route: 065
  9. VINCRISTINE [Suspect]
     Active Substance: VINCRISTINE
     Indication: ACUTE LYMPHOCYTIC LEUKAEMIA
     Route: 065

REACTIONS (9)
  - Oropharyngeal pain [Recovering/Resolving]
  - Enterococcal sepsis [Recovering/Resolving]
  - Lower respiratory tract infection fungal [Recovering/Resolving]
  - Geotrichum infection [Recovering/Resolving]
  - Mouth haemorrhage [Recovering/Resolving]
  - Pyrexia [Recovering/Resolving]
  - Gastrointestinal perforation [Recovering/Resolving]
  - Hepatic infection fungal [Recovering/Resolving]
  - Dry mouth [Recovering/Resolving]
